FAERS Safety Report 13040394 (Version 2)
Quarter: 2017Q1

REPORT INFORMATION
  Report Type: Spontaneous
  Country: JP (occurrence: JP)
  Receive Date: 20161219
  Receipt Date: 20170323
  Transmission Date: 20170428
  Serious: Yes (Death, Hospitalization, Other)
  Sender: FDA-Public Use
  Company Number: JP-PFIZER INC-2016583558

PATIENT
  Age: 80 Year
  Sex: Male
  Weight: 44.3 kg

DRUGS (11)
  1. TRIMEBUTINE [Concomitant]
     Active Substance: TRIMEBUTINE
     Dosage: 100 MG, 3X/DAY
  2. BAKTAR [Concomitant]
     Active Substance: SULFAMETHOXAZOLE\TRIMETHOPRIM
     Dosage: 3 DF, WEEKLY (1 TABLET ON MONDAY, WEDNESDAY AND FRIDAY)
  3. JUVELA N [Concomitant]
     Active Substance: TOCOPHERYL NICOTINATE, D-.ALPHA.
     Dosage: 200 MG, 3X/DAY
  4. RHEUMATREX [Suspect]
     Active Substance: METHOTREXATE SODIUM
     Dosage: 8 MG, WEEKLY
     Route: 048
     Dates: start: 20161201, end: 20170112
  5. RHEUMATREX [Suspect]
     Active Substance: METHOTREXATE SODIUM
     Indication: RHEUMATOID ARTHRITIS
     Dosage: 12 MG, WEEKLY
     Route: 048
     Dates: start: 201004, end: 20161125
  6. ROCORNAL [Concomitant]
     Active Substance: TRAPIDIL
     Dosage: 100 MG, 1X/DAY
  7. LEANAC [Concomitant]
     Dosage: 100 MG, 3X/DAY
  8. PROGRAF [Concomitant]
     Active Substance: TACROLIMUS\TACROLIMUS ANHYDROUS
     Dosage: 1 MG, 1X/DAY
  9. FOLIAMIN [Concomitant]
     Active Substance: FOLIC ACID
     Dosage: 5 MG, WEEKLY
     Route: 048
  10. BERIZYM [Concomitant]
     Active Substance: CELLULASE\DIASTASE\LIPASE
     Dosage: 0.4 G, 3X/DAY
  11. DOMPERIDONE [Concomitant]
     Active Substance: DOMPERIDONE
     Dosage: 10 MG, 3X/DAY

REACTIONS (4)
  - Pleural effusion [Fatal]
  - Pneumonia aspiration [Fatal]
  - Pneumonia [Fatal]
  - Atypical mycobacterial infection [Unknown]

NARRATIVE: CASE EVENT DATE: 20161018
